FAERS Safety Report 22701364 (Version 12)
Quarter: 2025Q3

REPORT INFORMATION
  Report Type: Report from Study
  Country: US (occurrence: US)
  Receive Date: 20230713
  Receipt Date: 20250907
  Transmission Date: 20251020
  Serious: Yes (Hospitalization, Other)
  Sender: UCB
  Company Number: US-UCBSA-2022071629

PATIENT
  Age: 9 Year
  Sex: Female
  Weight: 35 kg

DRUGS (18)
  1. FINTEPLA [Suspect]
     Active Substance: FENFLURAMINE
     Indication: Epilepsy
     Route: 048
     Dates: start: 20220919
  2. FINTEPLA [Suspect]
     Active Substance: FENFLURAMINE
     Indication: Severe myoclonic epilepsy of infancy
     Dates: start: 20221001
  3. FINTEPLA [Suspect]
     Active Substance: FENFLURAMINE
     Dosage: 3 MILLILITER, 2X/DAY (BID)
     Route: 048
  4. FINTEPLA [Suspect]
     Active Substance: FENFLURAMINE
     Dosage: 3 MILLILITER, 2X/DAY (BID)
     Route: 048
  5. FINTEPLA [Suspect]
     Active Substance: FENFLURAMINE
     Dosage: 3 MILLILITER, 2X/DAY (BID) (3 ML IN THE MORNING  AND 3 ML BEFORE BEDTIME)
     Route: 048
  6. FINTEPLA [Suspect]
     Active Substance: FENFLURAMINE
     Dosage: 4 MILLILITER, 2X/DAY (BID)
     Dates: start: 20221219
  7. FINTEPLA [Suspect]
     Active Substance: FENFLURAMINE
     Dosage: 5.5 MILLILITER, 2X/DAY (BID)
     Route: 048
  8. FINTEPLA [Suspect]
     Active Substance: FENFLURAMINE
     Dosage: 4.5 MILLILITER, 2X/DAY (BID)
     Route: 048
  9. FINTEPLA [Suspect]
     Active Substance: FENFLURAMINE
     Dosage: 13.2 MILLIGRAM, ONCE DAILY (QD)
     Route: 048
     Dates: start: 20230410
  10. FINTEPLA [Suspect]
     Active Substance: FENFLURAMINE
     Dosage: 24 MILLIGRAM, ONCE DAILY (QD)
     Route: 048
     Dates: start: 20230809
  11. FINTEPLA [Suspect]
     Active Substance: FENFLURAMINE
     Dosage: 20 MILLIGRAM, ONCE DAILY (QD)
     Route: 048
  12. FINTEPLA [Suspect]
     Active Substance: FENFLURAMINE
     Dosage: 9.9 MILLILITER, 2X/DAY (BID)
     Route: 048
  13. FINTEPLA [Suspect]
     Active Substance: FENFLURAMINE
     Route: 048
     Dates: start: 20221219
  14. FINTEPLA [Suspect]
     Active Substance: FENFLURAMINE
     Dosage: 4.5 MILLILITER, 2X/DAY (BID)
     Route: 048
  15. VIMPAT [Suspect]
     Active Substance: LACOSAMIDE
     Indication: Epilepsy
     Dosage: 200 MILLIGRAM, 2X/DAY (BID)/20 ML
     Route: 048
     Dates: start: 20220204
  16. VIMPAT [Suspect]
     Active Substance: LACOSAMIDE
     Indication: Seizure
  17. CLONAZEPAM [Concomitant]
     Active Substance: CLONAZEPAM
     Indication: Epilepsy
     Route: 048
     Dates: start: 20220107
  18. KLONOPIN [Concomitant]
     Active Substance: CLONAZEPAM
     Indication: Seizure
     Dosage: 2 MILLIGRAM, 3X/DAY (TID)
     Route: 048

REACTIONS (11)
  - Mitral valve incompetence [Not Recovered/Not Resolved]
  - Vagal nerve stimulator implantation [Not Recovered/Not Resolved]
  - Pneumonia [Recovered/Resolved]
  - Seizure [Not Recovered/Not Resolved]
  - Hospitalisation [Recovered/Resolved]
  - Tricuspid valve incompetence [Not Recovered/Not Resolved]
  - Dizziness [Not Recovered/Not Resolved]
  - Chills [Not Recovered/Not Resolved]
  - Somnolence [Recovered/Resolved]
  - Fatigue [Recovered/Resolved]
  - Blood urea decreased [Unknown]

NARRATIVE: CASE EVENT DATE: 20221216
